FAERS Safety Report 9123687 (Version 2)
Quarter: 2013Q2

REPORT INFORMATION
  Report Type: Spontaneous
  Country: US (occurrence: US)
  Receive Date: 20130227
  Receipt Date: 20130425
  Transmission Date: 20140414
  Serious: No
  Sender: FDA-Public Use
  Company Number: US-B.I. PHARMACEUTICALS,INC./RIDGEFIELD-2013-BI-04946BP

PATIENT
  Sex: Male

DRUGS (1)
  1. ZANTAC COOL MINT (TABLETS) [Suspect]

REACTIONS (2)
  - Diarrhoea [Unknown]
  - Product quality issue [Unknown]
